FAERS Safety Report 16925555 (Version 1)
Quarter: 2019Q4

REPORT INFORMATION
  Report Type: Spontaneous
  Country: US (occurrence: US)
  Receive Date: 20190823
  Receipt Date: 20190823
  Transmission Date: 20200122
  Serious: No
  Sender: FDA-Public Use
  Company Number: None

PATIENT
  Sex: Female

DRUGS (1)
  1. LUPRON DEPOT [Suspect]
     Active Substance: LEUPROLIDE ACETATE
     Indication: UTERINE LEIOMYOMA
     Dosage: ?          OTHER FREQUENCY:Q28DAYS;OTHER ROUTE:IM?
     Route: 030
     Dates: start: 20190627

REACTIONS (5)
  - Eye pain [None]
  - Ocular hyperaemia [None]
  - Insomnia [None]
  - Visual impairment [None]
  - Throat irritation [None]
